FAERS Safety Report 23684592 (Version 1)
Quarter: 2024Q1

REPORT INFORMATION
  Report Type: Report from Study
  Country: KR (occurrence: KR)
  Receive Date: 20240328
  Receipt Date: 20240328
  Transmission Date: 20240409
  Serious: Yes (Death, Hospitalization, Other)
  Sender: FDA-Public Use
  Company Number: KR-BR-2023-0189

PATIENT
  Age: 84 Year
  Sex: Male
  Weight: 77 kg

DRUGS (11)
  1. LURBINECTEDIN [Suspect]
     Active Substance: LURBINECTEDIN
     Indication: Small cell lung cancer
     Dosage: 4.3 MILLIGRAM/SQ. METER
     Route: 042
     Dates: start: 20230901, end: 20230901
  2. AGIO [Concomitant]
     Indication: Constipation
     Dosage: 6 GRAM
     Route: 048
     Dates: start: 20221101
  3. ELIQUIS [Concomitant]
     Active Substance: APIXABAN
     Indication: Atrial fibrillation
     Dosage: 1 DOSAGE FORM
     Route: 048
     Dates: start: 20220917
  4. MAGNESIUM OXIDE [Concomitant]
     Active Substance: MAGNESIUM OXIDE
     Indication: Constipation
     Dosage: 1 DOSAGE FORM / 12H
     Route: 048
     Dates: start: 20230630
  5. HARNAL [Concomitant]
     Active Substance: TAMSULOSIN HYDROCHLORIDE
     Indication: Pollakiuria
     Dosage: 1 DOSAGE FORM / Q12H
     Route: 048
     Dates: start: 20221021
  6. FINASTERIDE [Concomitant]
     Active Substance: FINASTERIDE
     Indication: Pollakiuria
     Dosage: 1 DOSAGE FORM / 1D
     Route: 048
     Dates: start: 20221021
  7. FUROSEMIDE [Concomitant]
     Active Substance: FUROSEMIDE
     Indication: Hypertension
     Dosage: 0.5 DOSAGE FORM / 1D
     Route: 048
     Dates: start: 20220911
  8. NORVASC [Concomitant]
     Active Substance: AMLODIPINE BESYLATE
     Indication: Hypertension
     Dosage: 1 DOSAGE FORM / 1D
     Route: 048
  9. KANARB [Concomitant]
     Indication: Hypertension
     Dosage: 1 DOSAGE FORM
     Route: 048
     Dates: start: 20220911
  10. ALOXI [Concomitant]
     Active Substance: PALONOSETRON HYDROCHLORIDE
     Indication: Chemotherapy side effect prophylaxis
     Dosage: 0.25 MILLIGRAM
     Dates: start: 20230901
  11. DEXAMETHASONE [Concomitant]
     Active Substance: DEXAMETHASONE
     Indication: Chemotherapy side effect prophylaxis
     Dosage: 10 MILLIGRAM
     Dates: start: 20230901

REACTIONS (1)
  - Neutropenic sepsis [Fatal]

NARRATIVE: CASE EVENT DATE: 20230910
